FAERS Safety Report 25185448 (Version 2)
Quarter: 2025Q2

REPORT INFORMATION
  Report Type: Spontaneous
  Country: US (occurrence: US)
  Receive Date: 20250410
  Receipt Date: 20250422
  Transmission Date: 20250717
  Serious: No
  Sender: ABBVIE
  Company Number: US-ABBVIE-6212639

PATIENT

DRUGS (2)
  1. RESTASIS [Suspect]
     Active Substance: CYCLOSPORINE
     Indication: Dry eye
     Dosage: 1 VIAL PER DAY
     Route: 047
     Dates: start: 2015
  2. RESTASIS [Suspect]
     Active Substance: CYCLOSPORINE
     Dosage: 1 VIAL PER DAY
     Route: 047

REACTIONS (5)
  - Sjogren^s syndrome [Unknown]
  - Liquid product physical issue [Unknown]
  - Eye irritation [Unknown]
  - Drug ineffective [Unknown]
  - Eye pain [Unknown]
